FAERS Safety Report 4646668-6 (Version None)
Quarter: 2005Q2

REPORT INFORMATION
  Report Type: 
  Country: None (occurrence: None)
  Receive Date: 20050425
  Receipt Date: 20050414
  Transmission Date: 20051028
  Serious: Yes (Hospitalization)
  Sender: FDA-Public Use
  Company Number: 05P-163-0297463-00

PATIENT
  Sex: Male

DRUGS (2)
  1. TRICOR [Suspect]
     Indication: BLOOD TRIGLYCERIDES INCREASED
     Dosage: 145 MG, 1 IN 1 D, PER ORAL
     Route: 048
     Dates: start: 20050301, end: 20050301
  2. UNSPECIFIED MEDICATIONS [Concomitant]

REACTIONS (4)
  - ANAPHYLACTIC REACTION [None]
  - CONDITION AGGRAVATED [None]
  - RASH GENERALISED [None]
  - RENAL FAILURE [None]
